FAERS Safety Report 8832043 (Version 4)
Quarter: 2012Q4

REPORT INFORMATION
  Report Type: 
  Country: US (occurrence: US)
  Receive Date: 20121009
  Receipt Date: 20121203
  Transmission Date: 20130627
  Serious: No
  Sender: FDA-Public Use
  Company Number: US-PFIZER INC-2012247727

PATIENT
  Age: 51 Year
  Sex: Male
  Weight: 99.77 kg

DRUGS (1)
  1. NITROSTAT [Suspect]
     Indication: ANGINA PECTORIS
     Dosage: 0.4 mg, as needed
     Dates: start: 2002

REACTIONS (2)
  - Tablet physical issue [Unknown]
  - Drug ineffective [Unknown]
